FAERS Safety Report 7293082-3 (Version None)
Quarter: 2011Q1

REPORT INFORMATION
  Report Type: 
  Country: None (occurrence: None)
  Receive Date: 20110215
  Receipt Date: 20110208
  Transmission Date: 20110831
  Serious: Yes (Other)
  Sender: FDA-Public Use
  Company Number: US-ROCHE-749647

PATIENT

DRUGS (1)
  1. ACTEMRA [Suspect]
     Route: 065
     Dates: start: 20100501

REACTIONS (5)
  - PAIN [None]
  - PRODUCT QUALITY ISSUE [None]
  - FEELING COLD [None]
  - RHEUMATOID ARTHRITIS [None]
  - INFLUENZA [None]
